FAERS Safety Report 15711914 (Version 1)
Quarter: 2018Q4

REPORT INFORMATION
  Report Type: Spontaneous
  Country: DK (occurrence: DK)
  Receive Date: 20181212
  Receipt Date: 20181212
  Transmission Date: 20190205
  Serious: Yes (Hospitalization, Other)
  Sender: FDA-Public Use
  Company Number: DK-ACCORD-095861

PATIENT
  Age: 60 Year
  Sex: Male

DRUGS (1)
  1. GEMCITABINE ACCORD [Suspect]
     Active Substance: GEMCITABINE HYDROCHLORIDE
     Indication: CHOLANGIOCARCINOMA
     Dosage: STRENGTH: 1 G
     Route: 042
     Dates: start: 20170316, end: 20171208

REACTIONS (7)
  - Pancytopenia [Unknown]
  - Renal failure [Not Recovered/Not Resolved]
  - Pyrexia [Unknown]
  - Thrombotic microangiopathy [Recovering/Resolving]
  - Dyspnoea [Unknown]
  - Fluid overload [Unknown]
  - Neutropenia [Unknown]

NARRATIVE: CASE EVENT DATE: 201712
